FAERS Safety Report 12578679 (Version 1)
Quarter: 2016Q3

REPORT INFORMATION
  Report Type: Spontaneous
  Country: US (occurrence: None)
  Receive Date: 20160720
  Receipt Date: 20160720
  Transmission Date: 20161109
  Serious: Yes (Life-Threatening, Hospitalization)
  Sender: FDA-Public Use
  Company Number: None

PATIENT
  Age: 10 Year
  Sex: Male
  Weight: 31.9 kg

DRUGS (3)
  1. LAMICTAL [Suspect]
     Active Substance: LAMOTRIGINE
     Indication: POST-TRAUMATIC STRESS DISORDER
     Dosage: 25 MG 2 TABS Q AM, 1 TAB ORAL
     Route: 048
  2. LAMICTAL [Suspect]
     Active Substance: LAMOTRIGINE
     Indication: GENERALISED ANXIETY DISORDER
     Dosage: 25 MG 2 TABS Q AM, 1 TAB ORAL
     Route: 048
  3. LAMICTAL [Suspect]
     Active Substance: LAMOTRIGINE
     Indication: TREATMENT FAILURE
     Dosage: 25 MG 2 TABS Q AM, 1 TAB ORAL
     Route: 048

REACTIONS (5)
  - Oropharyngeal pain [None]
  - Cough [None]
  - Respiratory arrest [None]
  - Rash generalised [None]
  - Stridor [None]

NARRATIVE: CASE EVENT DATE: 20160529
